FAERS Safety Report 18888690 (Version 16)
Quarter: 2022Q4

REPORT INFORMATION
  Report Type: Report from Study
  Country: CO (occurrence: CO)
  Receive Date: 20210212
  Receipt Date: 20221014
  Transmission Date: 20230112
  Serious: Yes (Other)
  Sender: FDA-Public Use
  Company Number: CO-TAKEDA-2021TUS005844

PATIENT
  Age: 65 Year
  Sex: Female
  Weight: 58.5 kg

DRUGS (10)
  1. VEDOLIZUMAB [Suspect]
     Active Substance: VEDOLIZUMAB
     Indication: Colitis ulcerative
     Dosage: 300 MILLIGRAM
     Route: 042
     Dates: start: 20210119
  2. VEDOLIZUMAB [Suspect]
     Active Substance: VEDOLIZUMAB
     Dosage: 300 MILLIGRAM, Q6WEEKS
     Route: 042
  3. VEDOLIZUMAB [Suspect]
     Active Substance: VEDOLIZUMAB
     Dosage: 300 MILLIGRAM
     Route: 042
  4. HYDROXYCHLOROQUINE [Suspect]
     Active Substance: HYDROXYCHLOROQUINE
     Indication: Arthritis
     Dosage: UNK UNK, QD
     Route: 065
  5. INFLAXEN [Concomitant]
     Dosage: 20 MILLIGRAM
  6. DIMARD [Concomitant]
     Dosage: 200 MILLIGRAM
  7. LEVOTHYROXINE SODIUM [Concomitant]
     Active Substance: LEVOTHYROXINE SODIUM
     Dosage: 50 MICROGRAM
  8. CALCIBON D [Concomitant]
     Dosage: UNK
  9. LOVASTATIN [Concomitant]
     Active Substance: LOVASTATIN
     Dosage: 20 MILLIGRAM
  10. EPACOR [Concomitant]
     Dosage: UNK

REACTIONS (27)
  - Haematochezia [Unknown]
  - Haemorrhage [Unknown]
  - Haemorrhoids [Recovering/Resolving]
  - Alopecia [Recovering/Resolving]
  - Gait disturbance [Recovering/Resolving]
  - Hypoaesthesia [Recovering/Resolving]
  - Decreased immune responsiveness [Unknown]
  - Malaise [Recovered/Resolved]
  - Dizziness [Recovered/Resolved]
  - Nausea [Recovered/Resolved]
  - Oedema peripheral [Recovered/Resolved]
  - Breast discharge [Unknown]
  - Weight increased [Unknown]
  - Skin lesion [Unknown]
  - Pain [Recovering/Resolving]
  - Poor venous access [Recovered/Resolved]
  - Asthenia [Unknown]
  - Anxiety [Unknown]
  - Insomnia [Unknown]
  - Depressed mood [Unknown]
  - Skin discolouration [Unknown]
  - Blood pressure increased [Recovered/Resolved]
  - Headache [Recovering/Resolving]
  - Pruritus [Unknown]
  - Pain in extremity [Unknown]
  - Depression [Unknown]
  - Off label use [Unknown]

NARRATIVE: CASE EVENT DATE: 20210119
